FAERS Safety Report 5481374-X (Version None)
Quarter: 2007Q4

REPORT INFORMATION
  Report Type: 
  Country: None (occurrence: None)
  Receive Date: 20071010
  Receipt Date: 20070928
  Transmission Date: 20080405
  Serious: Yes (Hospitalization)
  Sender: FDA-Public Use
  Company Number: US-AMGEN-STX245557

PATIENT
  Sex: Female

DRUGS (2)
  1. ENBREL [Suspect]
     Indication: PSORIATIC ARTHROPATHY
     Route: 058
     Dates: start: 20021115
  2. METHOTREXATE [Concomitant]
     Route: 048
     Dates: start: 20070401

REACTIONS (5)
  - HUMERUS FRACTURE [None]
  - INJECTION SITE PAIN [None]
  - ROAD TRAFFIC ACCIDENT [None]
  - SARCOIDOSIS [None]
  - UPPER LIMB FRACTURE [None]
